FAERS Safety Report 18174004 (Version 1)
Quarter: 2020Q3

REPORT INFORMATION
  Report Type: Spontaneous
  Country: US (occurrence: US)
  Receive Date: 20200819
  Receipt Date: 20200819
  Transmission Date: 20201103
  Serious: Yes (Other)
  Sender: FDA-Public Use
  Company Number: None

PATIENT
  Age: 63 Year
  Sex: Female
  Weight: 64.4 kg

DRUGS (1)
  1. OXYBUTYNIN XL [Suspect]
     Active Substance: OXYBUTYNIN CHLORIDE
     Route: 048
     Dates: start: 20200204, end: 20200501

REACTIONS (1)
  - Fall [None]

NARRATIVE: CASE EVENT DATE: 20200220
